FAERS Safety Report 17040256 (Version 1)
Quarter: 2019Q4

REPORT INFORMATION
  Report Type: Spontaneous
  Country: US (occurrence: US)
  Receive Date: 20191016
  Receipt Date: 20191016
  Transmission Date: 20200122
  Serious: Yes (Other)
  Sender: FDA-Public Use
  Company Number: None

PATIENT
  Age: 46 Year
  Sex: Male

DRUGS (3)
  1. ELQUIS [Concomitant]
  2. HUMIRA [Suspect]
     Active Substance: ADALIMUMAB
     Indication: PSORIATIC ARTHROPATHY
     Dosage: ?          OTHER FREQUENCY:EVERY 10 DAYS;?
     Route: 048
     Dates: start: 20180620
  3. CELEBREX [Concomitant]
     Active Substance: CELECOXIB

REACTIONS (2)
  - Pulmonary thrombosis [None]
  - Back pain [None]
